FAERS Safety Report 8872736 (Version 2)
Quarter: 2012Q4

REPORT INFORMATION
  Report Type: 
  Country: ZA (occurrence: ZA)
  Receive Date: 20121029
  Receipt Date: 20121130
  Transmission Date: 20130627
  Serious: Yes (Hospitalization, Other)
  Sender: FDA-Public Use
  Company Number: ZA-NOVOPROD-362440

PATIENT
  Sex: Male
  Weight: 1.03 kg

DRUGS (2)
  1. NOVORAPID FLEXPEN [Suspect]
     Indication: TYPE 2 DIABETES MELLITUS
     Dosage: 14 IU, qd
     Route: 064
     Dates: start: 20120826
  2. LEVEMIR FLEXPEN [Suspect]
     Indication: TYPE 2 DIABETES MELLITUS
     Dosage: 24 IU, qd
     Route: 064
     Dates: start: 20120826

REACTIONS (2)
  - Premature baby [Not Recovered/Not Resolved]
  - Foetal exposure during pregnancy [Recovered/Resolved]
